FAERS Safety Report 13089235 (Version 3)
Quarter: 2017Q2

REPORT INFORMATION
  Report Type: Spontaneous
  Country: GB (occurrence: GB)
  Receive Date: 20170105
  Receipt Date: 20170530
  Transmission Date: 20170830
  Serious: Yes (Hospitalization)
  Sender: FDA-Public Use
  Company Number: GB-PFIZER INC-2017002020

PATIENT
  Age: 32 Year
  Sex: Male
  Weight: 84 kg

DRUGS (1)
  1. DOXYCYCLINE HYCLATE. [Suspect]
     Active Substance: DOXYCYCLINE HYCLATE
     Indication: SKIN INFECTION
     Dosage: 100 MG, UNK
     Route: 048
     Dates: start: 20161120, end: 20161218

REACTIONS (8)
  - Foreign body [Unknown]
  - Product label issue [Unknown]
  - Oesophageal pain [Not Recovered/Not Resolved]
  - Depression [Recovering/Resolving]
  - Inappropriate schedule of drug administration [Unknown]
  - Oesophageal ulcer [Not Recovered/Not Resolved]
  - Depression suicidal [Recovered/Resolved]
  - Palpitations [Recovered/Resolved]

NARRATIVE: CASE EVENT DATE: 201612
